FAERS Safety Report 18975782 (Version 2)
Quarter: 2021Q1

REPORT INFORMATION
  Report Type: Spontaneous
  Country: CN (occurrence: CN)
  Receive Date: 20210305
  Receipt Date: 20210317
  Transmission Date: 20210420
  Serious: Yes (Other)
  Sender: FDA-Public Use
  Company Number: CN-PFIZER INC-2021218390

PATIENT
  Age: 50 Year
  Sex: Female
  Weight: 58 kg

DRUGS (4)
  1. METHOTREXATE. [Suspect]
     Active Substance: METHOTREXATE
     Indication: DIFFUSE LARGE B-CELL LYMPHOMA
     Dosage: 0.5 G, 1X/DAY
     Route: 041
     Dates: start: 20201228, end: 20201228
  2. NORMAL SALINE [Concomitant]
     Active Substance: SODIUM CHLORIDE
     Indication: VEHICLE SOLUTION USE
     Dosage: 100 ML, 1X/DAY
     Route: 041
     Dates: start: 20201228, end: 20201228
  3. METHOTREXATE. [Suspect]
     Active Substance: METHOTREXATE
     Dosage: 4.5 G, 1X/DAY
     Route: 041
     Dates: start: 20201228, end: 20201228
  4. NORMAL SALINE [Concomitant]
     Active Substance: SODIUM CHLORIDE
     Dosage: 500 ML, 1X/DAY
     Route: 041
     Dates: start: 20201228, end: 20201228

REACTIONS (2)
  - Mouth ulceration [Recovering/Resolving]
  - Pain [Recovering/Resolving]

NARRATIVE: CASE EVENT DATE: 20210110
